FAERS Safety Report 15354075 (Version 1)
Quarter: 2018Q3

REPORT INFORMATION
  Report Type: Spontaneous
  Country: SI (occurrence: SI)
  Receive Date: 20180906
  Receipt Date: 20180906
  Transmission Date: 20181010
  Serious: Yes (Hospitalization, Other)
  Sender: FDA-Public Use
  Company Number: SI-B.I. PHARMACEUTICALS,INC./RIDGEFIELD-2018-BI-043778

PATIENT
  Age: 78 Year
  Sex: Male

DRUGS (1)
  1. PRADAXA [Suspect]
     Active Substance: DABIGATRAN ETEXILATE MESYLATE
     Indication: ISCHAEMIC STROKE
     Route: 048
     Dates: start: 2016, end: 20180111

REACTIONS (2)
  - Adenocarcinoma of colon [Recovered/Resolved]
  - Iron deficiency anaemia [Recovered/Resolved]

NARRATIVE: CASE EVENT DATE: 20180111
